FAERS Safety Report 7381206-9 (Version None)
Quarter: 2011Q1

REPORT INFORMATION
  Report Type: 
  Country: None (occurrence: None)
  Receive Date: 20110329
  Receipt Date: 20110321
  Transmission Date: 20110831
  Serious: Yes (Death, Hospitalization, Other)
  Sender: FDA-Public Use
  Company Number: US-AMGEN-USASP2011013947

PATIENT
  Age: 73 Year
  Sex: Male

DRUGS (2)
  1. VECTIBIX [Suspect]
     Indication: COLORECTAL CANCER METASTATIC
     Dosage: UNK
     Dates: start: 20110304
  2. OXYGEN [Concomitant]
     Dosage: UNK
     Dates: start: 20110101

REACTIONS (3)
  - DEATH [None]
  - PNEUMONIA [None]
  - HAEMOPTYSIS [None]
